FAERS Safety Report 15790942 (Version 1)
Quarter: 2019Q1

REPORT INFORMATION
  Report Type: Spontaneous
  Country: US (occurrence: US)
  Receive Date: 20190104
  Receipt Date: 20190104
  Transmission Date: 20190417
  Serious: Yes (Death)
  Sender: FDA-Public Use
  Company Number: US-BAUSCH-BL-2018-036433

PATIENT
  Age: 45 Year
  Sex: Female

DRUGS (12)
  1. HYDROCODONE [Suspect]
     Active Substance: HYDROCODONE
     Route: 050
  2. LORAZEPAM. [Suspect]
     Active Substance: LORAZEPAM
     Route: 065
  3. INSULIN [Suspect]
     Active Substance: INSULIN NOS
     Indication: PRODUCT USED FOR UNKNOWN INDICATION
     Route: 048
  4. INSULIN [Suspect]
     Active Substance: INSULIN NOS
     Route: 050
  5. METOPROLOL. [Suspect]
     Active Substance: METOPROLOL
     Route: 065
  6. LORAZEPAM. [Suspect]
     Active Substance: LORAZEPAM
     Indication: PRODUCT USED FOR UNKNOWN INDICATION
     Route: 048
  7. METOPROLOL. [Suspect]
     Active Substance: METOPROLOL
     Indication: PRODUCT USED FOR UNKNOWN INDICATION
     Route: 048
  8. HYDROCODONE [Suspect]
     Active Substance: HYDROCODONE
     Indication: PRODUCT USED FOR UNKNOWN INDICATION
     Route: 048
  9. HYDROCODONE [Suspect]
     Active Substance: HYDROCODONE
     Route: 065
  10. INSULIN [Suspect]
     Active Substance: INSULIN NOS
     Route: 065
  11. LORAZEPAM. [Suspect]
     Active Substance: LORAZEPAM
     Indication: PRODUCT USED FOR UNKNOWN INDICATION
     Route: 050
  12. METOPROLOL. [Suspect]
     Active Substance: METOPROLOL
     Route: 050

REACTIONS (1)
  - Completed suicide [Fatal]
